FAERS Safety Report 18980109 (Version 1)
Quarter: 2021Q1

REPORT INFORMATION
  Report Type: Other
  Country: ES (occurrence: ES)
  Receive Date: 20210308
  Receipt Date: 20210308
  Transmission Date: 20210420
  Serious: Yes (Death)
  Sender: FDA-Public Use
  Company Number: ES-ROCHE-2736044

PATIENT
  Age: 74 Year
  Sex: Male

DRUGS (10)
  1. TOCILIZUMAB. [Suspect]
     Active Substance: TOCILIZUMAB
     Indication: COVID-19
     Route: 065
  2. HYDROXYCHLOROQUINE [Concomitant]
     Active Substance: HYDROXYCHLOROQUINE
  3. PREDNISONE. [Concomitant]
     Active Substance: PREDNISONE
     Dosage: }/= 20 MG/DAY
  4. MEROPENEM. [Suspect]
     Active Substance: MEROPENEM
     Indication: BACTERIAL INFECTION
     Route: 065
     Dates: start: 2020
  5. PIPERACILLIN SODIUM;TAZOBACTAM SODIUM [Suspect]
     Active Substance: PIPERACILLIN SODIUM\TAZOBACTAM SODIUM
     Indication: BACTERIAL INFECTION
     Dosage: UNK
     Route: 065
     Dates: start: 2020
  6. LOPINAVIR;RITONAVIR [Concomitant]
     Active Substance: LOPINAVIR\RITONAVIR
  7. GANCICLOVIR. [Suspect]
     Active Substance: GANCICLOVIR
     Indication: BACTERIAL INFECTION
     Route: 065
     Dates: start: 2020
  8. VANCOMYCIN [Suspect]
     Active Substance: VANCOMYCIN
     Indication: BACTERIAL INFECTION
     Route: 065
     Dates: start: 2020
  9. CEFTRIAXONE. [Suspect]
     Active Substance: CEFTRIAXONE
     Indication: BACTERIAL INFECTION
     Route: 065
     Dates: start: 2020
  10. INTERFERON BETA?1B [Concomitant]
     Active Substance: INTERFERON BETA-1B
     Indication: COVID-19
     Dosage: UNK
     Dates: start: 2020

REACTIONS (2)
  - Bronchopulmonary aspergillosis [Fatal]
  - Off label use [Unknown]

NARRATIVE: CASE EVENT DATE: 2020
